FAERS Safety Report 8290501-0 (Version None)
Quarter: 2012Q2

REPORT INFORMATION
  Report Type: 
  Country: None (occurrence: None)
  Receive Date: 20120417
  Receipt Date: 20110713
  Transmission Date: 20120825
  Serious: No
  Sender: FDA-Public Use
  Company Number: GB-ASTRAZENECA-2011SE42152

PATIENT
  Age: 63 Year
  Sex: Female

DRUGS (8)
  1. NEXIUM [Suspect]
     Indication: GASTROOESOPHAGEAL REFLUX DISEASE
     Route: 048
  2. LISINOPRIL [Concomitant]
  3. ATENOLOL [Concomitant]
  4. GLYBURIDE [Concomitant]
  5. ZETIA [Concomitant]
  6. METFOREMEN [Concomitant]
  7. LIPITOR [Concomitant]
  8. JANUVIA [Concomitant]

REACTIONS (1)
  - DRUG WITHDRAWAL SYNDROME [None]
